FAERS Safety Report 6307266-1 (Version None)
Quarter: 2009Q3

REPORT INFORMATION
  Report Type: 
  Country: None (occurrence: None)
  Receive Date: 20090813
  Receipt Date: 20070831
  Transmission Date: 20100115
  Serious: Yes (Other)
  Sender: FDA-Public Use
  Company Number: US-ASTRAZENECA-2006UW27505

PATIENT
  Age: 18495 Day
  Sex: Female
  Weight: 106.6 kg

DRUGS (21)
  1. SEROQUEL [Suspect]
     Indication: POST-TRAUMATIC STRESS DISORDER
     Dosage: 25-200 MG
     Route: 048
     Dates: start: 20011024
  2. SEROQUEL [Suspect]
     Dosage: 25 MG, 50 MG, 100 MG, 200 MG
     Route: 048
     Dates: start: 20011101, end: 20041101
  3. ABILIFY [Concomitant]
  4. EFFEXOR [Concomitant]
     Indication: ANXIETY
     Dosage: 75-150 MG EVERY DAY
     Dates: start: 20010613
  5. CELEXA [Concomitant]
     Dosage: 40-60 MG
     Dates: start: 20010613
  6. ATIVAN [Concomitant]
     Indication: ANXIETY
     Dosage: 0.5-1.5 MG
     Dates: start: 20010613
  7. ATIVAN [Concomitant]
     Indication: HEADACHE
     Dosage: 0.5-1.5 MG
     Dates: start: 20010613
  8. ZANAFLEX [Concomitant]
     Dosage: 2-6 MG
     Dates: start: 20010901
  9. CLONIDINE [Concomitant]
     Indication: BLOOD PRESSURE ABNORMAL
     Dosage: 0.2-1 MG
     Route: 048
     Dates: start: 20011008
  10. VASOTEC [Concomitant]
     Indication: BLOOD PRESSURE ABNORMAL
     Dates: start: 20010910
  11. AMITRIPTYLINE [Concomitant]
     Indication: HEADACHE
     Dosage: 10-200 MG
     Route: 048
     Dates: start: 20010613
  12. PREMARIN [Concomitant]
     Dates: start: 20010613
  13. LIPITOR [Concomitant]
     Route: 048
     Dates: start: 20040113
  14. HYZAAR [Concomitant]
     Dosage: 100/25 MG DAILY
     Route: 048
     Dates: start: 20040113, end: 20061024
  15. LEXAPRO [Concomitant]
     Indication: DEPRESSION
     Dosage: 25-60 MG DAILY
     Dates: start: 20030113
  16. PREVACID [Concomitant]
     Dosage: 30-40 MG DAILY
     Dates: start: 20050224
  17. ACTOS [Concomitant]
     Route: 048
     Dates: start: 20050224
  18. MICARDIS [Concomitant]
     Dates: start: 20050419
  19. LASIX [Concomitant]
     Dosage: 40-80 MG
     Dates: start: 20050419
  20. MOBIC [Concomitant]
     Indication: ARTHRALGIA
     Dosage: 7.5 MG,DAILY AS NEEDED
     Dates: start: 20050419
  21. SONATA [Concomitant]
     Indication: INSOMNIA
     Dates: start: 20010613

REACTIONS (5)
  - BLOOD GLUCOSE INCREASED [None]
  - CARDIOMYOPATHY [None]
  - DIABETES MELLITUS [None]
  - GLUCOSE TOLERANCE IMPAIRED [None]
  - TYPE 2 DIABETES MELLITUS [None]
